FAERS Safety Report 16053398 (Version 1)
Quarter: 2019Q1

REPORT INFORMATION
  Report Type: Spontaneous
  Country: US (occurrence: US)
  Receive Date: 20190308
  Receipt Date: 20190308
  Transmission Date: 20190418
  Serious: Yes (Other)
  Sender: FDA-Public Use
  Company Number: PHHY2019US050243

PATIENT

DRUGS (1)
  1. DABRAFENIB [Suspect]
     Active Substance: DABRAFENIB
     Indication: CENTRAL NERVOUS SYSTEM NEOPLASM
     Route: 065

REACTIONS (5)
  - Erythema multiforme [Unknown]
  - Pyrexia [Unknown]
  - Product use in unapproved indication [Unknown]
  - Papule [Unknown]
  - Nodule [Unknown]
